FAERS Safety Report 10670887 (Version 1)
Quarter: 2014Q4

REPORT INFORMATION
  Report Type: Spontaneous
  Country: US (occurrence: US)
  Receive Date: 20141223
  Receipt Date: 20141223
  Transmission Date: 20150529
  Serious: No
  Sender: FDA-Public Use
  Company Number: US-PFIZER INC-2014353856

PATIENT
  Age: 67 Year
  Sex: Male
  Weight: 89 kg

DRUGS (1)
  1. XANAX [Suspect]
     Active Substance: ALPRAZOLAM
     Indication: PREOPERATIVE CARE
     Dosage: 0.5 MG, SINGLE
     Route: 048
     Dates: start: 201412, end: 201412

REACTIONS (3)
  - Feeling abnormal [Unknown]
  - Crying [Unknown]
  - Depression [Unknown]

NARRATIVE: CASE EVENT DATE: 201412
